FAERS Safety Report 17085354 (Version 2)
Quarter: 2024Q2

REPORT INFORMATION
  Report Type: Spontaneous
  Country: CA (occurrence: CA)
  Receive Date: 20191128
  Receipt Date: 20240403
  Transmission Date: 20240715
  Serious: Yes (Other)
  Sender: FDA-Public Use
  Company Number: CA-AUROBINDO-AUR-APL-2019-075063

PATIENT
  Age: 34 Year
  Sex: Female

DRUGS (1)
  1. GABAPENTIN [Suspect]
     Active Substance: GABAPENTIN
     Indication: Neuralgia
     Dosage: 300 MILLIGRAM, 3 TIMES A DAY
     Route: 048

REACTIONS (5)
  - Disturbance in attention [Unknown]
  - Initial insomnia [Unknown]
  - Insomnia [Unknown]
  - Lethargy [Unknown]
  - Somnolence [Unknown]
